FAERS Safety Report 14293848 (Version 8)
Quarter: 2019Q2

REPORT INFORMATION
  Report Type: Report from Study
  Country: US (occurrence: US)
  Receive Date: 20171216
  Receipt Date: 20190405
  Transmission Date: 20190711
  Serious: No
  Sender: FDA-Public Use
  Company Number: PHEH2017US040802

PATIENT
  Age: 56 Year
  Sex: Female

DRUGS (1)
  1. GILENYA [Suspect]
     Active Substance: FINGOLIMOD HYDROCHLORIDE
     Indication: MULTIPLE SCLEROSIS
     Dosage: 0.5 MG, QD
     Route: 048
     Dates: start: 20170721

REACTIONS (21)
  - Influenza like illness [Not Recovered/Not Resolved]
  - Malaise [Unknown]
  - Infection [Unknown]
  - Cough [Not Recovered/Not Resolved]
  - Therapeutic product effect incomplete [Unknown]
  - Lethargy [Not Recovered/Not Resolved]
  - Swelling face [Unknown]
  - Central nervous system lesion [Unknown]
  - Pain [Unknown]
  - Depression [Unknown]
  - Genital rash [Not Recovered/Not Resolved]
  - Abdominal pain upper [Not Recovered/Not Resolved]
  - Headache [Unknown]
  - Sinusitis [Not Recovered/Not Resolved]
  - Tooth infection [Unknown]
  - Muscle spasms [Not Recovered/Not Resolved]
  - Visual impairment [Unknown]
  - Facial pain [Unknown]
  - Abdominal pain [Not Recovered/Not Resolved]
  - Asthenia [Unknown]
  - Fatigue [Unknown]

NARRATIVE: CASE EVENT DATE: 20180301
